FAERS Safety Report 5286959-1 (Version None)
Quarter: 2007Q2

REPORT INFORMATION
  Report Type: 
  Country: None (occurrence: None)
  Receive Date: 20070404
  Receipt Date: 20070326
  Transmission Date: 20071010
  Serious: Yes (Other)
  Sender: FDA-Public Use
  Company Number: CA-ABBOTT-07P-028-0363257-00

PATIENT
  Age: 29 Year
  Sex: Male

DRUGS (1)
  1. BIAXIN XL [Suspect]
     Indication: BRONCHITIS
     Route: 048
     Dates: start: 20070322, end: 20070325

REACTIONS (3)
  - COUGH [None]
  - ERYTHEMA [None]
  - RASH MACULO-PAPULAR [None]
